FAERS Safety Report 17867135 (Version 5)
Quarter: 2022Q2

REPORT INFORMATION
  Report Type: Report from Study
  Country: US (occurrence: US)
  Receive Date: 20200605
  Receipt Date: 20220411
  Transmission Date: 20220721
  Serious: Yes (Hospitalization, Other)
  Sender: FDA-Public Use
  Company Number: NVSC2020US158080

PATIENT
  Age: 16 Year
  Sex: Male
  Weight: 73 kg

DRUGS (1)
  1. KYMRIAH [Suspect]
     Active Substance: TISAGENLECLEUCEL
     Indication: Acute lymphocytic leukaemia
     Dosage: 18 ML
     Route: 042
     Dates: start: 20200526, end: 20200526

REACTIONS (7)
  - Respiratory distress [Recovering/Resolving]
  - Cytokine release syndrome [Recovering/Resolving]
  - Pyrexia [Unknown]
  - Pneumonia [Recovering/Resolving]
  - Bacteraemia [Unknown]
  - Pancytopenia [Unknown]
  - Hypertension [Unknown]

NARRATIVE: CASE EVENT DATE: 20200622
